FAERS Safety Report 10279465 (Version 1)
Quarter: 2014Q3

REPORT INFORMATION
  Report Type: Spontaneous
  Country: US (occurrence: US)
  Receive Date: 20140707
  Receipt Date: 20140707
  Transmission Date: 20150326
  Serious: No
  Sender: FDA-Public Use
  Company Number: US-009507513-1406USA013946

PATIENT
  Age: 63 Year
  Sex: Male

DRUGS (1)
  1. JANUMET [Suspect]
     Active Substance: METFORMIN HYDROCHLORIDE\SITAGLIPTIN PHOSPHATE
     Indication: DIABETES MELLITUS
     Dosage: 50/500 MG TWICE DAILY
     Route: 048
     Dates: start: 20140626

REACTIONS (2)
  - Toothache [Recovered/Resolved]
  - Musculoskeletal pain [Unknown]

NARRATIVE: CASE EVENT DATE: 20140626
